FAERS Safety Report 6803754-X (Version None)
Quarter: 2010Q2

REPORT INFORMATION
  Report Type: 
  Country: None (occurrence: None)
  Receive Date: 20100628
  Receipt Date: 20100628
  Transmission Date: 20101027
  Serious: Yes (Life-Threatening)
  Sender: FDA-Public Use
  Company Number: None

PATIENT
  Sex: Female

DRUGS (1)
  1. DOXORUBICIN HCL [Suspect]
     Dosage: IV DRIP ; ONE TIME
     Route: 041

REACTIONS (7)
  - BRADYCARDIA [None]
  - FLUSHING [None]
  - HYPOTENSION [None]
  - IATROGENIC INJURY [None]
  - INFUSION RELATED REACTION [None]
  - MUSCLE TWITCHING [None]
  - WRONG TECHNIQUE IN DRUG USAGE PROCESS [None]
